FAERS Safety Report 25868673 (Version 1)
Quarter: 2025Q4

REPORT INFORMATION
  Report Type: Spontaneous
  Country: US (occurrence: US)
  Receive Date: 20251001
  Receipt Date: 20251001
  Transmission Date: 20260118
  Serious: No
  Sender: RECKITT BENCKISER
  Company Number: US-INDIVIOR US-INDV-151557-2024

PATIENT
  Age: 51 Year
  Sex: Male
  Weight: 85.261 kg

DRUGS (4)
  1. SUBOXONE [Suspect]
     Active Substance: BUPRENORPHINE HYDROCHLORIDE\NALOXONE HYDROCHLORIDE
     Indication: Drug use disorder
     Dosage: 8 MILLIGRAM, BID
     Route: 060
     Dates: start: 202001
  2. SUBOXONE [Suspect]
     Active Substance: BUPRENORPHINE HYDROCHLORIDE\NALOXONE HYDROCHLORIDE
     Dosage: UNK (SUBOXONE 8-2MG 1.5-2 TABLETS A DAY)
     Route: 060
     Dates: start: 202206, end: 202306
  3. SUBOXONE [Suspect]
     Active Substance: BUPRENORPHINE HYDROCHLORIDE\NALOXONE HYDROCHLORIDE
     Dosage: 8 MILLIGRAM, BID
     Route: 060
     Dates: start: 202307
  4. BUPRENORPHINE\NALOXONE [Suspect]
     Active Substance: BUPRENORPHINE\NALOXONE
     Indication: Drug use disorder
     Dosage: 8 MILLIGRAM, UNK
     Route: 065
     Dates: start: 202006

REACTIONS (9)
  - Rotator cuff syndrome [Unknown]
  - Dental caries [Not Recovered/Not Resolved]
  - Tooth erosion [Not Recovered/Not Resolved]
  - Gastroenteritis [Unknown]
  - Nausea [Unknown]
  - Vomiting [Unknown]
  - Inappropriate schedule of product administration [Unknown]
  - Wrong technique in product usage process [Recovered/Resolved]
  - Substance abuse [Unknown]

NARRATIVE: CASE EVENT DATE: 20200101
